FAERS Safety Report 8702164 (Version 2)
Quarter: 2013Q4

REPORT INFORMATION
  Report Type: Spontaneous
  Country: US (occurrence: US)
  Receive Date: 20120803
  Receipt Date: 20131101
  Transmission Date: 20140711
  Serious: No
  Sender: FDA-Public Use
  Company Number: US-009507513-86040132

PATIENT
  Sex: Male
  Weight: 93.44 kg

DRUGS (1)
  1. ELAVIL [Suspect]
     Dosage: 100 MG, UNK
     Route: 048
     Dates: start: 19841001, end: 19860101

REACTIONS (2)
  - Eye disorder [Recovered/Resolved]
  - Lacrimation increased [Unknown]
